FAERS Safety Report 6813955-2 (Version None)
Quarter: 2010Q3

REPORT INFORMATION
  Report Type: 
  Country: None (occurrence: None)
  Receive Date: 20100702
  Receipt Date: 20100628
  Transmission Date: 20110219
  Serious: Yes (Death, Hospitalization)
  Sender: FDA-Public Use
  Company Number: GB-BAYER-201013020GPV

PATIENT
  Age: 63 Year
  Sex: Male
  Weight: 85 kg

DRUGS (5)
  1. SORAFENIB [Suspect]
     Indication: RENAL CELL CARCINOMA
     Dosage: TOTAL DAILY DOSE: 800 MG
     Dates: start: 20091118, end: 20100115
  2. BISOPROLOL FUMARATE [Concomitant]
     Indication: HYPERTENSION
     Route: 048
     Dates: start: 20091006, end: 20100127
  3. FELODIPINE [Concomitant]
     Indication: HYPERTENSION
     Dates: start: 20091006, end: 20100119
  4. ACETAMINOPHEN [Concomitant]
  5. CEFTRIAXONE [Concomitant]
     Route: 042

REACTIONS (5)
  - BLOOD PRESSURE INCREASED [None]
  - HEPATIC ENCEPHALOPATHY [None]
  - HEPATIC FAILURE [None]
  - JAUNDICE [None]
  - RENAL FAILURE [None]
